FAERS Safety Report 7093892-1 (Version None)
Quarter: 2010Q4

REPORT INFORMATION
  Report Type: 
  Country: None (occurrence: None)
  Receive Date: 20101110
  Receipt Date: 20100726
  Transmission Date: 20110411
  Serious: Yes (Hospitalization, Other)
  Sender: FDA-Public Use
  Company Number: US-BAYER-200941479NA

PATIENT
  Age: 33 Year
  Sex: Female
  Weight: 72 kg

DRUGS (11)
  1. YAZ [Suspect]
     Indication: CONTRACEPTION
     Dates: start: 20061128, end: 20090615
  2. YAZ [Suspect]
  3. PROTONIX [Concomitant]
     Route: 065
  4. RELPAX [Concomitant]
     Route: 065
  5. ADVIL [Concomitant]
     Route: 065
  6. DULCOLAX [Concomitant]
     Route: 065
  7. RELPAX [Concomitant]
     Route: 065
  8. VALTREX [Concomitant]
     Dosage: 29-MAY-2009
     Route: 065
  9. CELEBREX [Concomitant]
     Dosage: 05-JUN-2009 (10 DAY SUPPLY)
     Route: 065
  10. PROPOXYPHENE N WITH APAP [Concomitant]
     Dosage: 06-JUN2-009
     Route: 065
  11. HYDROCODONE BITARTRATE + ACETAMINOPHEN [Concomitant]
     Dosage: 04-JUN-2009
     Route: 065

REACTIONS (6)
  - DYSPNOEA [None]
  - LUNG NEOPLASM [None]
  - PLEURAL EFFUSION [None]
  - PLEURITIC PAIN [None]
  - PULMONARY EMBOLISM [None]
  - PULMONARY INFARCTION [None]
